FAERS Safety Report 10235026 (Version 6)
Quarter: 2014Q3

REPORT INFORMATION
  Report Type: Report from Study
  Country: CA (occurrence: CA)
  Receive Date: 20140613
  Receipt Date: 20140917
  Transmission Date: 20150326
  Serious: Yes (Hospitalization, Other)
  Sender: FDA-Public Use
  Company Number: PHHY2011CA80563

PATIENT
  Age: 77 Year
  Sex: Male

DRUGS (1)
  1. SANDOSTATIN LAR DEPOT [Suspect]
     Active Substance: OCTREOTIDE ACETATE
     Indication: PANCREATIC NEUROENDOCRINE TUMOUR
     Dosage: 30 MG, EVERY 4 WEEKS
     Route: 030
     Dates: start: 20110117

REACTIONS (18)
  - Injury [Unknown]
  - Constipation [Unknown]
  - Muscle strain [Unknown]
  - Pain in extremity [Recovered/Resolved]
  - Contusion [Unknown]
  - Anorectal discomfort [Unknown]
  - Arthralgia [Unknown]
  - Diarrhoea [Recovered/Resolved]
  - Gait disturbance [Unknown]
  - Blood glucose increased [Unknown]
  - Epistaxis [Unknown]
  - Circulatory collapse [Unknown]
  - Back pain [Not Recovered/Not Resolved]
  - Syncope [Unknown]
  - Hypotension [Unknown]
  - Blood pressure increased [Recovered/Resolved]
  - Headache [Recovered/Resolved]
  - Pain [Unknown]

NARRATIVE: CASE EVENT DATE: 20130929
